FAERS Safety Report 4464809-0 (Version None)
Quarter: 2004Q3

REPORT INFORMATION
  Report Type: 
  Country: None (occurrence: None)
  Receive Date: 20040929
  Receipt Date: 20040913
  Transmission Date: 20050211
  Serious: Yes (Death, Other)
  Sender: FDA-Public Use
  Company Number: USA040669217

PATIENT
  Age: 45 Year
  Sex: Male
  Weight: 80 kg

DRUGS (25)
  1. ALIMTA [Suspect]
     Indication: MESOTHELIOMA
     Dates: start: 20040513, end: 20040604
  2. CISPLATIN [Concomitant]
  3. LEUCOVORIN CALCIUM [Concomitant]
  4. LEUCOVORIN CALCIUM [Concomitant]
  5. NEUPOGEN [Concomitant]
  6. LEUCOVORIN CALCIUM [Concomitant]
  7. NEUPOGEN [Concomitant]
  8. FOLIC ACID [Concomitant]
  9. VITAMIN B-12 [Concomitant]
  10. CIPROFLOXACIN [Concomitant]
  11. OXYCODONE HCL [Concomitant]
  12. OXYCONTIN [Concomitant]
  13. COMPAZINE [Concomitant]
  14. CISPLATIN [Concomitant]
  15. MITOMYCIN [Concomitant]
  16. FLUOROURACIL [Concomitant]
  17. LEUCOVORIN CALCIUM [Concomitant]
  18. ETOPOSIDE [Concomitant]
  19. ATIVAN [Concomitant]
  20. ZOFRAN [Concomitant]
  21. CEPHALEXIN [Concomitant]
  22. COUMADIN [Concomitant]
  23. PREDNISONE [Concomitant]
  24. MEGACE [Concomitant]
  25. ARANESP [Concomitant]

REACTIONS (30)
  - ABDOMINAL DISTENSION [None]
  - ABDOMINAL PAIN [None]
  - ANAEMIA [None]
  - ASCITES [None]
  - ASTHENIA [None]
  - BACK PAIN [None]
  - BLOOD ALBUMIN DECREASED [None]
  - BLOOD POTASSIUM INCREASED [None]
  - BRONCHITIS [None]
  - CHEST PAIN [None]
  - CONSTIPATION [None]
  - DECREASED APPETITE [None]
  - DIARRHOEA [None]
  - DISEASE PROGRESSION [None]
  - DYSPNOEA [None]
  - FATIGUE [None]
  - INTERNATIONAL NORMALISED RATIO INCREASED [None]
  - MEDICATION ERROR [None]
  - MESOTHELIOMA MALIGNANT RECURRENT [None]
  - MUCOSAL INFLAMMATION [None]
  - NAUSEA [None]
  - OEDEMA PERIPHERAL [None]
  - OVERDOSE [None]
  - PAIN [None]
  - PHARYNGOLARYNGEAL PAIN [None]
  - PLATELET COUNT DECREASED [None]
  - RENAL IMPAIRMENT [None]
  - VOMITING [None]
  - WEIGHT INCREASED [None]
  - WHITE BLOOD CELL COUNT INCREASED [None]
